FAERS Safety Report 6038439-3 (Version None)
Quarter: 2009Q1

REPORT INFORMATION
  Report Type: 
  Country: None (occurrence: None)
  Receive Date: 20090113
  Receipt Date: 20090113
  Transmission Date: 20090719
  Serious: Yes (Hospitalization)
  Sender: FDA-Public Use
  Company Number: None

PATIENT
  Sex: Male
  Weight: 90.8 kg

DRUGS (7)
  1. FLUOROURACIL [Suspect]
     Dosage: 5328 MG
     Dates: end: 20081229
  2. ELOXATIN [Suspect]
     Dosage: 189 MG
     Dates: end: 20081217
  3. FEXOFENADINE EXTENDED RELEASE [Concomitant]
  4. LISINIOPRIL [Concomitant]
  5. MULTI-VITAMIN [Concomitant]
  6. OMEPRAZOLE [Concomitant]
  7. SERTRALINE [Concomitant]

REACTIONS (6)
  - DIARRHOEA [None]
  - ILEUS [None]
  - NAUSEA [None]
  - PYREXIA [None]
  - VOMITING [None]
  - WHITE BLOOD CELLS STOOL POSITIVE [None]
